FAERS Safety Report 5627224-X (Version None)
Quarter: 2008Q1

REPORT INFORMATION
  Report Type: 
  Country: None (occurrence: None)
  Receive Date: 20080215
  Receipt Date: 20080204
  Transmission Date: 20080703
  Serious: Yes (Hospitalization)
  Sender: FDA-Public Use
  Company Number: FR-BRISTOL-MYERS SQUIBB COMPANY-14076798

PATIENT
  Age: 78 Year
  Sex: Male

DRUGS (3)
  1. ERBITUX [Suspect]
     Indication: COLORECTAL CANCER METASTATIC
     Route: 042
     Dates: start: 20080125, end: 20080125
  2. POLARAMINE [Concomitant]
     Indication: PREMEDICATION
     Dates: start: 20080125
  3. SOLU-MEDROL [Concomitant]
     Indication: PREMEDICATION
     Dates: start: 20080125

REACTIONS (5)
  - FATIGUE [None]
  - HYPOTENSION [None]
  - INFUSION RELATED REACTION [None]
  - RASH PRURITIC [None]
  - SHOCK [None]
